FAERS Safety Report 6138170-X (Version None)
Quarter: 2009Q1

REPORT INFORMATION
  Report Type: 
  Country: None (occurrence: None)
  Receive Date: 20090331
  Receipt Date: 20090330
  Transmission Date: 20090719
  Serious: Yes (Other)
  Sender: FDA-Public Use
  Company Number: A0771046A

PATIENT
  Age: 69 Year
  Sex: Female

DRUGS (13)
  1. ALLI [Suspect]
     Route: 048
     Dates: start: 20090101, end: 20090101
  2. PRAVACHOL [Concomitant]
  3. FOLIC ACID [Concomitant]
  4. METHOTREXATE [Concomitant]
  5. LISINOPRIL [Concomitant]
  6. ASCORBIC ACID [Concomitant]
  7. FISH OIL [Concomitant]
  8. PREMARIN [Concomitant]
     Route: 067
  9. FLEXERIL [Concomitant]
  10. TYLENOL [Concomitant]
  11. NEURONTIN [Concomitant]
  12. SYMBICORT [Concomitant]
  13. PRILOSEC [Concomitant]

REACTIONS (3)
  - DIARRHOEA [None]
  - HAEMORRHOIDS [None]
  - RECTAL HAEMORRHAGE [None]
